FAERS Safety Report 18568775 (Version 1)
Quarter: 2020Q4

REPORT INFORMATION
  Report Type: Spontaneous
  Country: ET (occurrence: ET)
  Receive Date: 20201202
  Receipt Date: 20201202
  Transmission Date: 20210114
  Serious: Yes (Hospitalization)
  Sender: FDA-Public Use
  Company Number: NVSC2020ET318510

PATIENT
  Age: 67 Year
  Sex: Male

DRUGS (6)
  1. TINIDAZOLE. [Suspect]
     Active Substance: TINIDAZOLE
     Indication: GASTROINTESTINAL INFECTION
     Dosage: UNK
     Route: 065
  2. CIPROFLOXACIN. [Suspect]
     Active Substance: CIPROFLOXACIN
     Indication: GASTROINTESTINAL INFECTION
     Dosage: UNK
     Route: 065
  3. SULFAMETHOXAZOLE AND TRIMETHOPRIM [Suspect]
     Active Substance: SULFAMETHOXAZOLE\TRIMETHOPRIM
     Indication: URINARY TRACT INFECTION
  4. TINIDAZOLE. [Suspect]
     Active Substance: TINIDAZOLE
     Indication: URINARY TRACT INFECTION
  5. CIPROFLOXACIN. [Suspect]
     Active Substance: CIPROFLOXACIN
     Indication: URINARY TRACT INFECTION
  6. SULFAMETHOXAZOLE AND TRIMETHOPRIM [Suspect]
     Active Substance: SULFAMETHOXAZOLE\TRIMETHOPRIM
     Indication: GASTROINTESTINAL INFECTION
     Dosage: UNK
     Route: 065

REACTIONS (1)
  - Clostridium difficile infection [Recovering/Resolving]
